FAERS Safety Report 10429865 (Version 1)
Quarter: 2014Q3

REPORT INFORMATION
  Report Type: Spontaneous
  Country: US (occurrence: None)
  Receive Date: 20140903
  Receipt Date: 20140903
  Transmission Date: 20150326
  Serious: Yes (Death, Hospitalization, Disabling)
  Sender: FDA-Public Use
  Company Number: None

PATIENT
  Age: 83 Year
  Sex: Female
  Weight: 58.06 kg

DRUGS (1)
  1. ALENDRONATE [Suspect]
     Active Substance: ALENDRONATE SODIUM
     Indication: OSTEOPOROSIS
     Dosage: STANDARD DOSE 1X WEEK TAKEN BY MOUTH
     Route: 048

REACTIONS (6)
  - Gait disturbance [None]
  - Clostridium difficile infection [None]
  - Muscular weakness [None]
  - Pain [None]
  - Muscle spasms [None]
  - Pneumonia [None]
